FAERS Safety Report 15391052 (Version 1)
Quarter: 2018Q3

REPORT INFORMATION
  Report Type: Spontaneous
  Country: US (occurrence: US)
  Receive Date: 20180910
  Receipt Date: 20180910
  Transmission Date: 20181010
  Serious: Yes (Life-Threatening, Hospitalization, Disabling, Other)
  Sender: FDA-Public Use
  Company Number: None

PATIENT
  Age: 28 Year
  Sex: Male
  Weight: 81.9 kg

DRUGS (12)
  1. SENNA/DOCUSATE [Concomitant]
  2. TROPICAMIDE 1% [Concomitant]
     Active Substance: TROPICAMIDE
  3. PROPRANOLOL [Concomitant]
     Active Substance: PROPRANOLOL HYDROCHLORIDE
  4. CLOZAPINE. [Suspect]
     Active Substance: CLOZAPINE
     Indication: PSYCHOTIC DISORDER
     Route: 048
     Dates: start: 20180730, end: 20180822
  5. GLYCOPYRROLATE. [Concomitant]
     Active Substance: GLYCOPYRROLATE
  6. RANIDITINE [Concomitant]
  7. DOCUSATE [Concomitant]
     Active Substance: DOCUSATE
  8. BUSPIRONE [Concomitant]
     Active Substance: BUSPIRONE HYDROCHLORIDE
  9. ATOMOXETINE. [Concomitant]
     Active Substance: ATOMOXETINE HYDROCHLORIDE
  10. DIVALPROEX [Concomitant]
     Active Substance: DIVALPROEX SODIUM
  11. BENZTROPINE. [Concomitant]
     Active Substance: BENZTROPINE
  12. SIMETHICONE (DIMETHICONE) [Concomitant]
     Active Substance: DIMETHICONE

REACTIONS (9)
  - Fall [None]
  - Tachycardia [None]
  - Pallor [None]
  - Abdominal compartment syndrome [None]
  - Cyanosis [None]
  - Unresponsive to stimuli [None]
  - Haematochezia [None]
  - Blood pressure decreased [None]
  - Ileus [None]

NARRATIVE: CASE EVENT DATE: 20180823
